FAERS Safety Report 17826275 (Version 1)
Quarter: 2020Q2

REPORT INFORMATION
  Report Type: Report from Study
  Country: US (occurrence: US)
  Receive Date: 20200526
  Receipt Date: 20200526
  Transmission Date: 20200714
  Serious: Yes (Other)
  Sender: FDA-Public Use
  Company Number: US-SA-2020SA118626

PATIENT
  Age: 72 Year
  Sex: Female

DRUGS (1)
  1. SARILUMAB [Suspect]
     Active Substance: SARILUMAB
     Indication: CORONAVIRUS INFECTION
     Dosage: REGN88 OR PLACEBO, 200 MG OR 400 MG INTRAVENOUSLY (IV) SINGLE DOSE FOR 1 HOUR OR MULTIPLE DOSES
     Route: 042
     Dates: start: 20200422, end: 20200422

REACTIONS (1)
  - Neutropenia [Unknown]

NARRATIVE: CASE EVENT DATE: 20200423
